FAERS Safety Report 7611729-6 (Version None)
Quarter: 2011Q2

REPORT INFORMATION
  Report Type: 
  Country: None (occurrence: None)
  Receive Date: 20110627
  Receipt Date: 20110620
  Transmission Date: 20111010
  Serious: Yes (Other)
  Sender: FDA-Public Use
  Company Number: 2011028999

PATIENT
  Age: 12 Year
  Sex: Male
  Weight: 44.4525 kg

DRUGS (8)
  1. HIZENTRA [Suspect]
     Indication: IMMUNODEFICIENCY
     Dosage: (5 G 1X/WEEK, 1 GM 5 ML VIA;25 ML IN 2 SITES AS DIRECTED SUBCUTANEOUS) ; (SUBCUTANEOUS)
     Route: 058
     Dates: start: 20110611
  2. HIZENTRA [Suspect]
     Indication: IMMUNODEFICIENCY
     Dosage: (5 G 1X/WEEK, 1 GM 5 ML VIA;25 ML IN 2 SITES AS DIRECTED SUBCUTANEOUS) ; (SUBCUTANEOUS)
     Route: 058
     Dates: start: 20110611
  3. ALBUTEROL [Concomitant]
  4. DUONEB (COMBIVENT /0126101/) [Concomitant]
  5. HIZENTRA [Suspect]
  6. PULMICORT [Concomitant]
  7. QVAR [Concomitant]
  8. RISPERDAL [Concomitant]

REACTIONS (2)
  - INFUSION SITE MASS [None]
  - INFECTION [None]
